FAERS Safety Report 19918510 (Version 1)
Quarter: 2021Q4

REPORT INFORMATION
  Report Type: Report from Study
  Country: IE (occurrence: IE)
  Receive Date: 20211004
  Receipt Date: 20211004
  Transmission Date: 20220303
  Serious: Yes (Other)
  Sender: FDA-Public Use
  Company Number: IE-ALNYLAM PHARMACEUTICALS, INC.-ALN-2018-000212

PATIENT

DRUGS (11)
  1. PATISIRAN SODIUM [Suspect]
     Active Substance: PATISIRAN SODIUM
     Indication: Hereditary neuropathic amyloidosis
     Dosage: 20 MILLIGRAM, Q3W
     Route: 042
     Dates: start: 20180925
  2. ASPIRIN [Concomitant]
     Active Substance: ASPIRIN
     Indication: Polycythaemia vera
     Dosage: 75 MILLIGRAM
     Route: 048
  3. FLUDROCORTISONE [Concomitant]
     Active Substance: FLUDROCORTISONE
     Indication: Orthostatic hypotension
     Dosage: 300 MICROGRAM
     Route: 048
  4. HYDROXYUREA [Concomitant]
     Active Substance: HYDROXYUREA
     Indication: Polycythaemia vera
     Dosage: 500 MILLIGRAM
     Route: 048
  5. LANSOPRAZOLE [Concomitant]
     Active Substance: LANSOPRAZOLE
     Indication: Prophylaxis against gastrointestinal ulcer
     Dosage: 30 MILLIGRAM
     Route: 048
  6. CODEINE [Concomitant]
     Active Substance: CODEINE
     Indication: Diarrhoea
     Dosage: 15 MILLIGRAM
     Route: 048
  7. LOPERAMIDE [Concomitant]
     Active Substance: LOPERAMIDE
     Indication: Diarrhoea
     Dosage: 4 MILLIGRAM, PRN
     Route: 048
  8. FUROSEMIDE [Concomitant]
     Active Substance: FUROSEMIDE
     Indication: Fluid imbalance
     Dosage: 40 MILLIGRAM
     Route: 048
  9. SPIRONOLACTONE [Concomitant]
     Active Substance: SPIRONOLACTONE
     Indication: Fluid imbalance
     Dosage: 50 MILLIGRAM
     Route: 048
  10. PIPERACILLIN SODIUM\TAZOBACTAM SODIUM [Concomitant]
     Active Substance: PIPERACILLIN SODIUM\TAZOBACTAM SODIUM
     Indication: Infection
     Dosage: 4.5 GRAM
     Route: 042
  11. MIDODRINE [Concomitant]
     Active Substance: MIDODRINE
     Indication: Infection
     Dosage: 2.5 GRAM
     Route: 042

REACTIONS (1)
  - Nodal arrhythmia [Recovered/Resolved]

NARRATIVE: CASE EVENT DATE: 20180928
